FAERS Safety Report 10981756 (Version 1)
Quarter: 2015Q1

REPORT INFORMATION
  Report Type: Spontaneous
  Country: US (occurrence: None)
  Receive Date: 20150227
  Receipt Date: 20150227
  Transmission Date: 20150721
  Serious: Yes (Life-Threatening, Hospitalization)
  Sender: FDA-Public Use
  Company Number: LMI-2014-00008

PATIENT
  Age: 87 Year
  Sex: Male

DRUGS (8)
  1. CARVEDILOL. [Concomitant]
     Active Substance: CARVEDILOL
  2. INSULIN [Concomitant]
     Active Substance: INSULIN NOS
  3. LISINOPRIL. [Concomitant]
     Active Substance: LISINOPRIL
  4. ACETYLSALICYLIC ACID [Concomitant]
     Active Substance: ASPIRIN
  5. LASIX [Concomitant]
     Active Substance: FUROSEMIDE
  6. COUMADIN [Concomitant]
     Active Substance: WARFARIN SODIUM
  7. DEFINITY [Suspect]
     Active Substance: PERFLUTREN
     Indication: ECHOCARDIOGRAM
     Dosage: UNKNOWN DOSE (1.3 CC DEFINITY DILUTED IN 8.7 CC NORMAL SALINE)
     Route: 040
     Dates: start: 20140109, end: 20140109
  8. HYDRALOSIN^ (HYDRALAZINE) [Concomitant]

REACTIONS (1)
  - Cardiac arrest [None]

NARRATIVE: CASE EVENT DATE: 20140109
